FAERS Safety Report 7493578-5 (Version None)
Quarter: 2011Q2

REPORT INFORMATION
  Report Type: 
  Country: None (occurrence: None)
  Receive Date: 20110519
  Receipt Date: 20110519
  Transmission Date: 20111010
  Serious: Yes (Hospitalization)
  Sender: FDA-Public Use
  Company Number: None

PATIENT
  Sex: Female
  Weight: 79.8 kg

DRUGS (6)
  1. VINCRISTINE SULFATE [Suspect]
     Dosage: 1.6MG
  2. ETOPOSIDE [Suspect]
     Dosage: 280MG
  3. DOXORUBICIN HCL [Suspect]
     Dosage: 56MG
  4. PREDNISONE [Suspect]
     Dosage: 240MG
  5. RITUXIMAB (MOAB C2B8 ANTI CD20, CHIMERIC) [Suspect]
     Dosage: 730MG
  6. CYCLOPHOSPHAMIDE [Suspect]
     Dosage: 0MG

REACTIONS (4)
  - CHEST DISCOMFORT [None]
  - BLOOD PRESSURE INCREASED [None]
  - SEPSIS [None]
  - BACTERIAL TEST POSITIVE [None]
